FAERS Safety Report 6752642-6 (Version None)
Quarter: 2010Q2

REPORT INFORMATION
  Report Type: 
  Country: None (occurrence: None)
  Receive Date: 20100602
  Receipt Date: 20050726
  Transmission Date: 20101027
  Serious: Yes (Other)
  Sender: FDA-Public Use
  Company Number: PHHY2005CL02166

PATIENT
  Age: 73 Year
  Sex: Female

DRUGS (1)
  1. MIACALCIN [Suspect]
     Route: 045

REACTIONS (2)
  - BRONCHITIS [None]
  - VIRAL INFECTION [None]
